FAERS Safety Report 22624494 (Version 1)
Quarter: 2023Q2

REPORT INFORMATION
  Report Type: Spontaneous
  Country: US (occurrence: None)
  Receive Date: 20230616
  Receipt Date: 20230616
  Transmission Date: 20230721
  Serious: Yes (Hospitalization)
  Sender: FDA-Public Use
  Company Number: None

PATIENT
  Age: 77 Year
  Sex: Female

DRUGS (1)
  1. PIQRAY [Suspect]
     Active Substance: ALPELISIB
     Indication: Breast cancer female
     Dosage: 200MG ONCE DAILY ORAL
     Route: 048
     Dates: start: 20210112

REACTIONS (2)
  - Therapy interrupted [None]
  - Haemorrhage [None]

NARRATIVE: CASE EVENT DATE: 20230608
